FAERS Safety Report 8826224 (Version 1)
Quarter: 2012Q4

REPORT INFORMATION
  Report Type: 
  Country: MX (occurrence: MX)
  Receive Date: 20121005
  Receipt Date: 20121005
  Transmission Date: 20130627
  Serious: Yes (Hospitalization, Other)
  Sender: FDA-Public Use
  Company Number: PHHY2012MX087081

PATIENT
  Age: 60 Year
  Sex: Female

DRUGS (1)
  1. EXFORGE HCT [Suspect]
     Indication: HYPERTENSION
     Dosage: 1 tablet (160/5/12.5 mg), daily
     Dates: start: 20120703, end: 201207

REACTIONS (1)
  - Neoplasm malignant [Recovered/Resolved]
